FAERS Safety Report 15163606 (Version 1)
Quarter: 2018Q3

REPORT INFORMATION
  Report Type: Report from Study
  Country: None (occurrence: CA)
  Receive Date: 20180719
  Receipt Date: 20180719
  Transmission Date: 20181010
  Serious: Yes (Other)
  Sender: FDA-Public Use
  Company Number: CA-ABBVIE-18K-028-2423684-00

PATIENT
  Sex: Female

DRUGS (3)
  1. ENTOCORT [Suspect]
     Active Substance: BUDESONIDE
     Indication: PRODUCT USED FOR UNKNOWN INDICATION
     Route: 048
     Dates: start: 2018, end: 2018
  2. HUMIRA [Suspect]
     Active Substance: ADALIMUMAB
     Indication: CROHN^S DISEASE
     Route: 058
  3. ENTOCORT [Suspect]
     Active Substance: BUDESONIDE
     Route: 048
     Dates: start: 2018, end: 2018

REACTIONS (6)
  - Frequent bowel movements [Not Recovered/Not Resolved]
  - Abdominal adhesions [Unknown]
  - Irritable bowel syndrome [Unknown]
  - Small intestinal obstruction [Not Recovered/Not Resolved]
  - Intestinal resection [Unknown]
  - Crohn^s disease [Not Recovered/Not Resolved]

NARRATIVE: CASE EVENT DATE: 2004
